FAERS Safety Report 13083123 (Version 2)
Quarter: 2017Q1

REPORT INFORMATION
  Report Type: Spontaneous
  Country: US (occurrence: US)
  Receive Date: 20170104
  Receipt Date: 20170130
  Transmission Date: 20170428
  Serious: No
  Sender: FDA-Public Use
  Company Number: US-TAIHO ONCOLOGY INC-EU-2016-03299

PATIENT
  Sex: Male

DRUGS (12)
  1. WELLBUTRIN [Concomitant]
     Active Substance: BUPROPION HYDROCHLORIDE
     Dosage: NI
  2. LONSURF [Suspect]
     Active Substance: TIPIRACIL HYDROCHLORIDE\TRIFLURIDINE
     Indication: COLON CANCER METASTATIC
     Route: 048
     Dates: start: 20161206
  3. ONDANSETRON [Concomitant]
     Active Substance: ONDANSETRON
     Dosage: NI
  4. ATROPINE SULFATE/DIPHENOXYLATE HYDROCHLORIDE [Concomitant]
     Dosage: NI
  5. TURMERIC [Concomitant]
     Active Substance: TURMERIC
     Dosage: NI
  6. CARVEDILOL. [Concomitant]
     Active Substance: CARVEDILOL
     Dosage: NI
  7. LOPERAMIDE [Concomitant]
     Active Substance: LOPERAMIDE
     Dosage: NI
  8. TYLENOL [Concomitant]
     Active Substance: ACETAMINOPHEN
     Dosage: NI
  9. ACETYLSALICYLIC ACID [Concomitant]
     Active Substance: ASPIRIN
     Dosage: NI
  10. OXYCODONE [Concomitant]
     Active Substance: OXYCODONE
     Dosage: NI
  11. PROCHLORPERAZINE MALEATE. [Concomitant]
     Active Substance: PROCHLORPERAZINE MALEATE
     Dosage: NI
  12. LORAZEPAM. [Concomitant]
     Active Substance: LORAZEPAM
     Dosage: NI

REACTIONS (1)
  - Fatigue [Recovering/Resolving]

NARRATIVE: CASE EVENT DATE: 2016
